FAERS Safety Report 21120423 (Version 1)
Quarter: 2022Q3

REPORT INFORMATION
  Report Type: Spontaneous
  Country: US (occurrence: US)
  Receive Date: 20220722
  Receipt Date: 20220722
  Transmission Date: 20221026
  Serious: Yes (Other)
  Sender: FDA-Public Use
  Company Number: US-TAKEDA-2022TUS048985

PATIENT
  Sex: Male

DRUGS (2)
  1. ENTYVIO [Suspect]
     Active Substance: VEDOLIZUMAB
     Indication: Skin cancer
     Dosage: UNK
     Route: 042
  2. ENTYVIO [Suspect]
     Active Substance: VEDOLIZUMAB
     Indication: Lymphoma

REACTIONS (4)
  - Pulmonary embolism [Unknown]
  - Inflammatory bowel disease [Unknown]
  - Mobility decreased [Unknown]
  - Off label use [Unknown]
